FAERS Safety Report 18299241 (Version 29)
Quarter: 2025Q2

REPORT INFORMATION
  Report Type: Report from Study
  Country: US (occurrence: US)
  Receive Date: 20200923
  Receipt Date: 20250630
  Transmission Date: 20250717
  Serious: Yes (Hospitalization, Other)
  Sender: TAKEDA
  Company Number: US-SHIRE-US202030911

PATIENT
  Sex: Female
  Weight: 88 kg

DRUGS (29)
  1. HUMAN IMMUNOGLOBULIN G [Suspect]
     Active Substance: HUMAN IMMUNOGLOBULIN G
     Indication: Immunodeficiency common variable
     Dosage: 10 GRAM, 1/WEEK
  2. HUMAN IMMUNOGLOBULIN G [Suspect]
     Active Substance: HUMAN IMMUNOGLOBULIN G
     Dosage: 40 GRAM, Q4WEEKS
     Dates: start: 20210402
  3. HUMAN IMMUNOGLOBULIN G [Suspect]
     Active Substance: HUMAN IMMUNOGLOBULIN G
     Dosage: 10 GRAM, 1/WEEK
  4. COVID-19 VACCINE NOS [Suspect]
     Active Substance: COVID-19 VACCINE
     Indication: Product used for unknown indication
  5. ACETAMINOPHEN [Concomitant]
     Active Substance: ACETAMINOPHEN
  6. ELIQUIS [Concomitant]
     Active Substance: APIXABAN
  7. LIDOCAINE [Concomitant]
     Active Substance: LIDOCAINE
  8. LIDOCAINE\PRILOCAINE [Concomitant]
     Active Substance: LIDOCAINE\PRILOCAINE
  9. PREDNISONE [Concomitant]
     Active Substance: PREDNISONE
  10. DIPHENHYDRAMINE [Concomitant]
     Active Substance: DIPHENHYDRAMINE
  11. IBUPROFEN [Concomitant]
     Active Substance: IBUPROFEN
  12. OMEPRAZOLE [Concomitant]
     Active Substance: OMEPRAZOLE
  13. ORENCIA [Concomitant]
     Active Substance: ABATACEPT
  14. CELEBREX [Concomitant]
     Active Substance: CELECOXIB
  15. DIOVAN [Concomitant]
     Active Substance: VALSARTAN
  16. VERAPAMIL [Concomitant]
     Active Substance: VERAPAMIL HYDROCHLORIDE
  17. NIACIN [Concomitant]
     Active Substance: NIACIN
  18. MELOXICAM [Concomitant]
     Active Substance: MELOXICAM
  19. HYDROCHLOROTHIAZIDE [Concomitant]
     Active Substance: HYDROCHLOROTHIAZIDE
  20. MAGNESIUM [Concomitant]
     Active Substance: MAGNESIUM
  21. EPINEPHRINE [Concomitant]
     Active Substance: EPINEPHRINE
  22. CALCIUM PHOSPHATE\ERGOCALCIFEROL [Concomitant]
     Active Substance: CALCIUM PHOSPHATE\ERGOCALCIFEROL
  23. FISH OIL [Concomitant]
     Active Substance: FISH OIL
  24. SODIUM CHLORIDE [Concomitant]
     Active Substance: SODIUM CHLORIDE
  25. DOXYCYCLINE HYCLATE [Concomitant]
     Active Substance: DOXYCYCLINE HYCLATE
  26. FISH OIL\OMEGA-3 FATTY ACIDS [Concomitant]
     Active Substance: FISH OIL\OMEGA-3 FATTY ACIDS
  27. ADVIL [Concomitant]
     Active Substance: IBUPROFEN
  28. ACETYLCYSTEINE\LEVOMEFOLATE CALCIUM\METHYLCOBALAMIN [Concomitant]
     Active Substance: ACETYLCYSTEINE\LEVOMEFOLATE CALCIUM\METHYLCOBALAMIN
  29. DIPHENHYDRAMINE HYDROCHLORIDE [Concomitant]
     Active Substance: DIPHENHYDRAMINE HYDROCHLORIDE

REACTIONS (24)
  - Respiratory syncytial virus infection [Unknown]
  - Illness [Recovering/Resolving]
  - Neoplasm malignant [Unknown]
  - Rheumatoid arthritis [Unknown]
  - Pneumonia [Unknown]
  - Pulmonary congestion [Unknown]
  - Infusion related reaction [Recovered/Resolved]
  - Limb injury [Unknown]
  - Cystitis [Unknown]
  - Gastroenteritis viral [Unknown]
  - Weight decreased [Unknown]
  - Fall [Recovering/Resolving]
  - Joint injury [Recovering/Resolving]
  - Chronic obstructive pulmonary disease [Unknown]
  - Drug hypersensitivity [Unknown]
  - Nasopharyngitis [Unknown]
  - Muscular weakness [Unknown]
  - Tremor [Unknown]
  - Chills [Unknown]
  - Dermatitis contact [Unknown]
  - Vaccination site bruising [Unknown]
  - Product dose omission issue [Unknown]
  - Inappropriate schedule of product administration [Unknown]
  - Product use issue [Unknown]
